FAERS Safety Report 10663449 (Version 1)
Quarter: 2014Q4

REPORT INFORMATION
  Report Type: Spontaneous
  Country: US (occurrence: US)
  Receive Date: 20141219
  Receipt Date: 20141219
  Transmission Date: 20150529
  Serious: Yes (Hospitalization, Other)
  Sender: FDA-Public Use
  Company Number: US-JNJFOC-20141207782

PATIENT
  Age: 13 Year
  Sex: Female

DRUGS (1)
  1. DIPHENHYDRAMINE HYDROCHLORIDE. [Suspect]
     Active Substance: DIPHENHYDRAMINE HYDROCHLORIDE
     Indication: PRODUCT USED FOR UNKNOWN INDICATION
     Dosage: APPROXIMATELY 24 PILLS OF 25MG EACH , TOTAL 600MG, 9.5 MG/KG
     Route: 065

REACTIONS (2)
  - Anticholinergic syndrome [Recovered/Resolved]
  - Intentional overdose [Unknown]
